FAERS Safety Report 4418496-8 (Version None)
Quarter: 2004Q3

REPORT INFORMATION
  Report Type: 
  Country: None (occurrence: None)
  Receive Date: 20040809
  Receipt Date: 20040512
  Transmission Date: 20050211
  Serious: No
  Sender: FDA-Public Use
  Company Number: US-GLAXOSMITHKLINE-A0510684A

PATIENT
  Sex: Male

DRUGS (1)
  1. PAXIL CR [Suspect]
     Indication: DRUG USE FOR UNKNOWN INDICATION
     Dosage: 25MG SINGLE DOSE
     Route: 048
     Dates: start: 20040511

REACTIONS (4)
  - ABNORMAL DREAMS [None]
  - FATIGUE [None]
  - IRRITABILITY [None]
  - STOMACH DISCOMFORT [None]
